FAERS Safety Report 25065352 (Version 1)
Quarter: 2025Q1

REPORT INFORMATION
  Report Type: Report from Study
  Country: US (occurrence: US)
  Receive Date: 20250311
  Receipt Date: 20250311
  Transmission Date: 20250408
  Serious: No
  Sender: INCYTE
  Company Number: US-EVENT-001942

PATIENT

DRUGS (1)
  1. JAKAFI [Suspect]
     Active Substance: RUXOLITINIB
     Route: 065

REACTIONS (2)
  - Full blood count increased [Unknown]
  - Product availability issue [Unknown]
